FAERS Safety Report 7988892 (Version 2)
Quarter: 2012Q4

REPORT INFORMATION
  Report Type: 
  Country: CA (occurrence: CA)
  Receive Date: 20110613
  Receipt Date: 20121109
  Transmission Date: 20130627
  Serious: Yes (Other)
  Sender: FDA-Public Use
  Company Number: PHMT2007CA02328

PATIENT
  Sex: Male

DRUGS (1)
  1. SANDOSTATIN LAR [Suspect]
     Indication: CARCINOID TUMOUR
     Dosage: 30 mg, OT
     Route: 030
     Dates: start: 20061023

REACTIONS (7)
  - Deep vein thrombosis [Unknown]
  - Oedema peripheral [Unknown]
  - Pain in extremity [Unknown]
  - Back pain [Unknown]
  - Nasopharyngitis [Recovering/Resolving]
  - Headache [Unknown]
  - Fatigue [Unknown]
